FAERS Safety Report 4424824-X (Version None)
Quarter: 2004Q3

REPORT INFORMATION
  Report Type: 
  Country: None (occurrence: None)
  Receive Date: 20040809
  Receipt Date: 20040728
  Transmission Date: 20050211
  Serious: Yes (Hospitalization)
  Sender: FDA-Public Use
  Company Number: 03P-062-0241624-00

PATIENT
  Age: 8 Year
  Sex: Male

DRUGS (6)
  1. DEPAKENE [Suspect]
     Indication: EPILEPSY
     Dosage: SEE IMAGE
     Route: 048
     Dates: start: 19960101, end: 20031101
  2. DEPAKENE [Suspect]
     Indication: INFANTILE SPASMS
     Dosage: SEE IMAGE
     Route: 048
     Dates: start: 19960101, end: 20031101
  3. DEPAKENE [Suspect]
     Indication: EPILEPSY
     Dosage: SEE IMAGE
     Route: 048
     Dates: start: 20031101, end: 20031101
  4. DEPAKENE [Suspect]
     Indication: INFANTILE SPASMS
     Dosage: SEE IMAGE
     Route: 048
     Dates: start: 20031101, end: 20031101
  5. CLONAZEPAM [Concomitant]
  6. TOPIRMATE [Concomitant]

REACTIONS (20)
  - BETA 2 MICROGLOBULIN URINE INCREASED [None]
  - BLOOD URIC ACID DECREASED [None]
  - CONJUNCTIVAL HYPERAEMIA [None]
  - COUGH [None]
  - ELECTROENCEPHALOGRAM ABNORMAL [None]
  - EXOPHTHALMOS [None]
  - FANCONI SYNDROME ACQUIRED [None]
  - GINGIVAL HYPERPLASIA [None]
  - HYPERCHLORAEMIA [None]
  - HYPERNATRAEMIA [None]
  - HYPERURICOSURIA [None]
  - HYPONATRAEMIA [None]
  - KUSSMAUL RESPIRATION [None]
  - METABOLIC ACIDOSIS [None]
  - MUSCLE TWITCHING [None]
  - OSTEOMALACIA [None]
  - RENAL IMPAIRMENT [None]
  - STATUS EPILEPTICUS [None]
  - URINE PHOSPHATE INCREASED [None]
  - VOMITING [None]
